FAERS Safety Report 25120874 (Version 1)
Quarter: 2025Q1

REPORT INFORMATION
  Report Type: Spontaneous
  Country: US (occurrence: US)
  Receive Date: 20250325
  Receipt Date: 20250325
  Transmission Date: 20250409
  Serious: Yes (Other)
  Sender: ARGENX BVBA
  Company Number: US-ARGENX-2025-ARGX-US003332

PATIENT

DRUGS (1)
  1. VYVGART HYTRULO [Suspect]
     Active Substance: EFGARTIGIMOD ALFA\HYALURONIDASE-QVFC
     Indication: Myasthenia gravis
     Route: 058

REACTIONS (2)
  - Musculoskeletal pain [Unknown]
  - Back pain [Unknown]

NARRATIVE: CASE EVENT DATE: 20250201
